FAERS Safety Report 9241508 (Version 1)
Quarter: 2013Q1

REPORT INFORMATION
  Report Type: Spontaneous
  Country: US (occurrence: None)
  Receive Date: 20121121
  Receipt Date: 20121121
  Transmission Date: 20140127
  Serious: Yes (Death, Hospitalization)
  Sender: FDA-Public Use
  Company Number: 12000038

PATIENT
  Sex: Male

DRUGS (1)
  1. JANTOVEN [Suspect]
     Indication: PRODUCT USED FOR UNKNOWN INDICATION
     Route: 048
     Dates: start: 20100726, end: 201008

REACTIONS (2)
  - Pulmonary haemorrhage [None]
  - International normalised ratio increased [None]
